FAERS Safety Report 15578975 (Version 2)
Quarter: 2018Q4

REPORT INFORMATION
  Report Type: Spontaneous
  Country: US (occurrence: US)
  Receive Date: 20181102
  Receipt Date: 20181109
  Transmission Date: 20190205
  Serious: No
  Sender: FDA-Public Use
  Company Number: US-AMGEN-USASP2018151592

PATIENT
  Age: 65 Year
  Sex: Female

DRUGS (2)
  1. ENBREL [Suspect]
     Active Substance: ETANERCEPT
     Indication: RHEUMATOID ARTHRITIS
     Dosage: UNK
     Route: 065
     Dates: start: 2018, end: 201805
  2. ENBREL [Suspect]
     Active Substance: ETANERCEPT
     Dosage: 50 MG, QWK
     Route: 065
     Dates: start: 201805

REACTIONS (10)
  - Injection site vesicles [Unknown]
  - Underdose [Unknown]
  - Injection site pain [Unknown]
  - Tremor [Unknown]
  - Injection site erythema [Unknown]
  - Injection site haemorrhage [Not Recovered/Not Resolved]
  - Injection site reaction [Unknown]
  - Wrong technique in product usage process [Unknown]
  - Trigger finger [Not Recovered/Not Resolved]
  - Injection site swelling [Unknown]

NARRATIVE: CASE EVENT DATE: 2018
